FAERS Safety Report 25376819 (Version 1)
Quarter: 2025Q2

REPORT INFORMATION
  Report Type: Spontaneous
  Country: SE (occurrence: SE)
  Receive Date: 20250530
  Receipt Date: 20250530
  Transmission Date: 20250717
  Serious: Yes (Disabling)
  Sender: NOVO NORDISK
  Company Number: None

PATIENT
  Age: 58 Year
  Sex: Male
  Weight: 96 kg

DRUGS (2)
  1. VICTOZA [Suspect]
     Active Substance: LIRAGLUTIDE
     Indication: Type 2 diabetes mellitus
     Dates: start: 2019
  2. XULTOPHY 100/3.6 [Suspect]
     Active Substance: INSULIN DEGLUDEC\LIRAGLUTIDE
     Indication: Type 2 diabetes mellitus
     Dates: start: 2019

REACTIONS (3)
  - Unevaluable event [Recovered/Resolved with Sequelae]
  - Smegma accumulation [Recovered/Resolved with Sequelae]
  - Phimosis [Recovered/Resolved with Sequelae]

NARRATIVE: CASE EVENT DATE: 20190101
